FAERS Safety Report 25595567 (Version 2)
Quarter: 2025Q3

REPORT INFORMATION
  Report Type: Spontaneous
  Country: IR (occurrence: IR)
  Receive Date: 20250723
  Receipt Date: 20250725
  Transmission Date: 20251020
  Serious: Yes (Hospitalization)
  Sender: STRIDES
  Company Number: IR-STRIDES ARCOLAB LIMITED-2024SP016582

PATIENT
  Age: 40 Year
  Sex: Male

DRUGS (6)
  1. SERTRALINE HYDROCHLORIDE [Suspect]
     Active Substance: SERTRALINE HYDROCHLORIDE
     Indication: Major depression
     Route: 065
  2. SERTRALINE HYDROCHLORIDE [Suspect]
     Active Substance: SERTRALINE HYDROCHLORIDE
     Indication: Psychogenic movement disorder
  3. AMANTADINE [Suspect]
     Active Substance: AMANTADINE
     Indication: Parkinson^s disease
     Route: 065
  4. LEVODOPA [Suspect]
     Active Substance: LEVODOPA
     Indication: Parkinson^s disease
     Route: 065
  5. QUETIAPINE [Suspect]
     Active Substance: QUETIAPINE
     Indication: Major depression
     Route: 065
  6. QUETIAPINE [Suspect]
     Active Substance: QUETIAPINE
     Indication: Psychogenic movement disorder
     Route: 065

REACTIONS (6)
  - Withdrawal syndrome [Unknown]
  - Drug intolerance [Unknown]
  - Treatment noncompliance [Unknown]
  - Therapy partial responder [Unknown]
  - Adverse drug reaction [Unknown]
  - Off label use [Unknown]
